FAERS Safety Report 10309018 (Version 2)
Quarter: 2014Q3

REPORT INFORMATION
  Report Type: Spontaneous
  Country: US (occurrence: US)
  Receive Date: 20140716
  Receipt Date: 20140716
  Transmission Date: 20150326
  Serious: Yes (Hospitalization, Other)
  Sender: FDA-Public Use
  Company Number: US-009507513-2011SP041922

PATIENT
  Sex: Female
  Weight: 88.45 kg

DRUGS (1)
  1. NUVARING [Suspect]
     Active Substance: ETHINYL ESTRADIOL\ETONOGESTREL
     Indication: CONTRACEPTION
     Route: 067
     Dates: start: 200908, end: 200909

REACTIONS (5)
  - Hypertension [Unknown]
  - Pulmonary embolism [Unknown]
  - Thrombosis [Unknown]
  - Antiphospholipid antibodies positive [Not Recovered/Not Resolved]
  - Phlebitis superficial [Not Recovered/Not Resolved]

NARRATIVE: CASE EVENT DATE: 2009
